FAERS Safety Report 18702692 (Version 5)
Quarter: 2021Q4

REPORT INFORMATION
  Report Type: Report from Study
  Country: US (occurrence: US)
  Receive Date: 20210105
  Receipt Date: 20211007
  Transmission Date: 20220303
  Serious: No
  Sender: FDA-Public Use
  Company Number: NVSC2021US001292

PATIENT
  Sex: Female

DRUGS (3)
  1. COSENTYX [Suspect]
     Active Substance: SECUKINUMAB
     Indication: Psoriatic arthropathy
     Dosage: 150 MG, QMO (5 WEEKS)
     Route: 058
     Dates: start: 20201207
  2. COSENTYX [Suspect]
     Active Substance: SECUKINUMAB
     Dosage: 300 MG, QMO
     Route: 058
  3. METHOTREXATE [Concomitant]
     Active Substance: METHOTREXATE
     Indication: Product used for unknown indication
     Dosage: UNK
     Route: 065

REACTIONS (10)
  - Oral pain [Recovering/Resolving]
  - Vaccination complication [Recovered/Resolved]
  - Nasal congestion [Not Recovered/Not Resolved]
  - Arthritis [Recovered/Resolved]
  - Arthralgia [Recovered/Resolved]
  - Epistaxis [Unknown]
  - Fatigue [Recovered/Resolved]
  - Dactylitis [Unknown]
  - Arthropathy [Unknown]
  - Therapeutic response decreased [Unknown]
